FAERS Safety Report 4674387-9 (Version None)
Quarter: 2005Q2

REPORT INFORMATION
  Report Type: 
  Country: None (occurrence: None)
  Receive Date: 20050524
  Receipt Date: 20050511
  Transmission Date: 20051028
  Serious: No
  Sender: FDA-Public Use
  Company Number: 2005-128303-NL

PATIENT
  Age: 53 Year
  Sex: Female
  Weight: 56.2 kg

DRUGS (6)
  1. REMERON [Suspect]
     Indication: DEPRESSION
     Dosage: 15 MG QD ORAL, AT BEDTIME
     Route: 048
     Dates: start: 20041201, end: 20050401
  2. REMERON [Suspect]
     Indication: DEPRESSION
     Dosage: 11.25 MG QD ORAL, AT BEDTIME
     Route: 048
     Dates: start: 20050401, end: 20050401
  3. MIRTAZAPINE [Suspect]
     Indication: DEPRESSION
     Dosage: 11.25 MG DAILY ORAL , AT BEDTIME
     Route: 048
     Dates: start: 20050401, end: 20050501
  4. MIRTAZAPINE [Suspect]
     Indication: DEPRESSION
     Dosage: 7.5 MG DAILY ORAL, AT BEDTIME
     Route: 048
     Dates: start: 20050501
  5. CALCIUM CARBONATE/ VITAMIN D [Concomitant]
  6. ABREVA [Concomitant]

REACTIONS (7)
  - BLOOD THYROID STIMULATING HORMONE DECREASED [None]
  - HEART RATE INCREASED [None]
  - LIVER FUNCTION TEST ABNORMAL [None]
  - OEDEMA PERIPHERAL [None]
  - THERAPEUTIC RESPONSE UNEXPECTED WITH DRUG SUBSTITUTION [None]
  - TRI-IODOTHYRONINE INCREASED [None]
  - WEIGHT INCREASED [None]
